FAERS Safety Report 5898914-9 (Version None)
Quarter: 2008Q3

REPORT INFORMATION
  Report Type: 
  Country: None (occurrence: None)
  Receive Date: 20080925
  Receipt Date: 20080917
  Transmission Date: 20090109
  Serious: Yes (Hospitalization)
  Sender: FDA-Public Use
  Company Number: JP-PFIZER INC-2008078877

PATIENT

DRUGS (2)
  1. SALAZOPYRIN [Suspect]
     Dates: start: 20050301, end: 20050301
  2. MESALAMINE [Concomitant]

REACTIONS (1)
  - NEPHRITIS INTERSTITIAL [None]
